FAERS Safety Report 17669524 (Version 1)
Quarter: 2020Q2

REPORT INFORMATION
  Report Type: Spontaneous
  Country: US (occurrence: US)
  Receive Date: 20200415
  Receipt Date: 20200415
  Transmission Date: 20200713
  Serious: No
  Sender: FDA-Public Use
  Company Number: US-BEH-2020115298

PATIENT
  Sex: Female

DRUGS (13)
  1. VITAMIN B1 [Concomitant]
     Active Substance: THIAMINE HYDROCHLORIDE
     Dosage: 10 MILLIGRAM
  2. ALBUTEROL SULFATE. [Concomitant]
     Active Substance: ALBUTEROL SULFATE
     Dosage: 0.63 MILLIGRAM/ 3
  3. IPRATROPIUM [Concomitant]
     Active Substance: IPRATROPIUM
  4. PREDNISONE. [Concomitant]
     Active Substance: PREDNISONE
     Dosage: 20 MILLIGRAM
  5. VITAMIN B12 [HYDROXOCOBALAMIN ACETATE] [Concomitant]
     Dosage: 100 MICROGRAM
  6. DILTIAZEM. [Concomitant]
     Active Substance: DILTIAZEM
  7. VENTOLIN HFA [Concomitant]
     Active Substance: ALBUTEROL SULFATE
     Dosage: 108/ 90
  8. HIZENTRA [Suspect]
     Active Substance: HUMAN IMMUNOGLOBULIN G
     Indication: CHRONIC OBSTRUCTIVE PULMONARY DISEASE
     Dosage: 7 GRAMS IN 2 SITES EVERY 7 DAYS
     Route: 058
     Dates: start: 201804
  9. NAPROSYN [Concomitant]
     Active Substance: NAPROXEN
     Dosage: 500 MILLIGRAM
  10. CIPROFLOXACIN HCL [Concomitant]
     Active Substance: CIPROFLOXACIN HYDROCHLORIDE
  11. VITAMIN D;VITAMIN E [Concomitant]
     Dosage: 50000 UNITS
  12. SIMVASTATIN. [Concomitant]
     Active Substance: SIMVASTATIN
  13. VITAMIN C [ASCORBIC ACID;BIOFLAVONOIDS;HESPERIDIN;MALPIGHIA GLABRA;ROS [Concomitant]
     Dosage: 1000 MILLIGRAM

REACTIONS (13)
  - Oropharyngeal pain [Recovered/Resolved]
  - No adverse event [Unknown]
  - Product use in unapproved indication [Unknown]
  - Injection site extravasation [Unknown]
  - Injection site mass [Recovered/Resolved]
  - Injection site erythema [Recovered/Resolved]
  - Rhinorrhoea [Recovered/Resolved]
  - Ear pain [Recovered/Resolved]
  - Hyperhidrosis [Recovered/Resolved]
  - Injection site extravasation [Recovered/Resolved]
  - Cough [Recovered/Resolved]
  - Dizziness [Recovered/Resolved]
  - Injection site swelling [Unknown]
